FAERS Safety Report 7949327-7 (Version None)
Quarter: 2011Q4

REPORT INFORMATION
  Report Type: 
  Country: None (occurrence: None)
  Receive Date: 20111130
  Receipt Date: 20111118
  Transmission Date: 20120403
  Serious: Yes (Hospitalization)
  Sender: FDA-Public Use
  Company Number: US-BAYER-201036971NA

PATIENT
  Age: 47 Year
  Sex: Female
  Weight: 64.853 kg

DRUGS (10)
  1. FERROUS SULFATE TAB [Concomitant]
     Dosage: UNK
     Dates: start: 20090327, end: 20090530
  2. ATENOLOL [Concomitant]
     Dosage: UNK
     Dates: start: 20091026
  3. NITROFURANTOIN [Concomitant]
     Indication: URINARY TRACT INFECTION
     Dosage: UNK
     Dates: start: 20090624, end: 20090707
  4. YAZ [Suspect]
     Indication: CONTRACEPTION
     Dosage: UNK
     Dates: start: 20090401, end: 20091229
  5. ALPRAZOLAM [Concomitant]
     Indication: ANXIETY
     Dosage: UNK
     Dates: start: 20070711, end: 20100624
  6. MECLIZINE [Concomitant]
     Dosage: UNK
     Dates: start: 20090924
  7. DESIPRAMIDE HCL [Concomitant]
     Indication: DEPRESSION
     Dosage: UNK
     Dates: start: 20070802, end: 20090830
  8. DOXYCYCLINE HYCLATE [DOXYCYCLINE HYCLATE] [Concomitant]
     Dosage: UNK
     Dates: start: 20090916
  9. PHENAZOPYRIDINE HCL TAB [Concomitant]
     Dosage: UNK
     Dates: start: 20090624
  10. LISINOPRIL [Concomitant]
     Indication: HYPERTENSION
     Dosage: UNK
     Dates: start: 20090903, end: 20100801

REACTIONS (17)
  - CARDIAC DISORDER [None]
  - DYSPEPSIA [None]
  - ABDOMINAL DISTENSION [None]
  - HYPERTENSION [None]
  - ANXIETY [None]
  - FLATULENCE [None]
  - BLOOD CHOLESTEROL ABNORMAL [None]
  - FATIGUE [None]
  - CHOLECYSTECTOMY [None]
  - DEPRESSION [None]
  - PULMONARY EMBOLISM [None]
  - SCAR [None]
  - DIARRHOEA [None]
  - FEAR [None]
  - ACUTE MYOCARDIAL INFARCTION [None]
  - CHOLECYSTITIS CHRONIC [None]
  - CONSTIPATION [None]
